FAERS Safety Report 20757947 (Version 1)
Quarter: 2022Q2

REPORT INFORMATION
  Report Type: Spontaneous
  Country: US (occurrence: US)
  Receive Date: 20220427
  Receipt Date: 20220427
  Transmission Date: 20220721
  Serious: Yes (Hospitalization)
  Sender: FDA-Public Use
  Company Number: US-MYOVANT SCIENCES IRELAND LIMITED-2022MYSCI0400484

PATIENT
  Age: 86 Year
  Sex: Male
  Weight: 79.365 kg

DRUGS (15)
  1. ORGOVYX [Suspect]
     Active Substance: RELUGOLIX
     Indication: Prostate cancer metastatic
     Dosage: 360 MILLIGRAM, ONE TIME DOSE
     Route: 048
     Dates: start: 20220129, end: 20220129
  2. ORGOVYX [Suspect]
     Active Substance: RELUGOLIX
     Dosage: 120 MILLIGRAM, QD
     Route: 048
     Dates: start: 20220130
  3. ZYTIGA [Concomitant]
     Active Substance: ABIRATERONE ACETATE
     Indication: Prostate cancer metastatic
     Dosage: 4 TAB
     Route: 048
  4. ZYTIGA [Concomitant]
     Active Substance: ABIRATERONE ACETATE
     Dosage: 1 TAB, QD
     Route: 048
  5. ZOMETA [Concomitant]
     Active Substance: ZOLEDRONIC ACID
     Indication: Bone disorder
     Dosage: 3.5 MILLIGRAM, QMO
     Route: 042
  6. ELIQUIS [Concomitant]
     Active Substance: APIXABAN
     Indication: Anticoagulant therapy
     Dosage: 5 MILLIGRAM, BID
     Route: 048
  7. CALCIUM + MINERALS [Concomitant]
     Indication: Supplementation therapy
     Dosage: 1 TAB, QD
     Route: 048
  8. VITAMIN D3 [Concomitant]
     Active Substance: CHOLECALCIFEROL
     Indication: Supplementation therapy
     Dosage: UNK TAB, QD
     Route: 048
  9. VITAMIN B12                        /07503801/ [Concomitant]
     Indication: Vitamin B12 deficiency
     Dosage: 1000 MILLIGRAM, QMO
     Route: 030
  10. LACTOBACILLUS ACIDOPHILUS [Concomitant]
     Active Substance: LACTOBACILLUS ACIDOPHILUS
     Indication: Supplementation therapy
     Dosage: UNK, QD
     Route: 048
  11. LISINOPRIL [Concomitant]
     Active Substance: LISINOPRIL
     Indication: Blood pressure abnormal
     Dosage: 40 MILLIGRAM, QD
     Route: 048
  12. MULTIVITAMIN                       /07504101/ [Concomitant]
     Indication: Supplementation therapy
     Dosage: UNK, QD
     Route: 048
  13. NEXIUM [Concomitant]
     Active Substance: ESOMEPRAZOLE MAGNESIUM
     Indication: Gastrooesophageal reflux disease
     Dosage: 20 MILLIGRAM, QOD
     Route: 048
  14. PREDNISONE [Concomitant]
     Active Substance: PREDNISONE
     Indication: Product used for unknown indication
     Dosage: 5 MILLIGRAM, QD
     Route: 048
  15. REMICADE [Concomitant]
     Active Substance: INFLIXIMAB
     Indication: Crohn^s disease
     Dosage: 10 MILLIGRAM PER MILLILITRE, Q2MO
     Route: 042

REACTIONS (6)
  - Loss of consciousness [Unknown]
  - Dizziness [Not Recovered/Not Resolved]
  - Fall [Recovered/Resolved]
  - Electrocardiogram abnormal [Unknown]
  - Blood magnesium decreased [Recovered/Resolved]
  - Dehydration [Recovered/Resolved]

NARRATIVE: CASE EVENT DATE: 20220311
